FAERS Safety Report 23974053 (Version 3)
Quarter: 2024Q3

REPORT INFORMATION
  Report Type: Report from Study
  Country: CH (occurrence: CH)
  Receive Date: 20240613
  Receipt Date: 20240824
  Transmission Date: 20241017
  Serious: Yes (Hospitalization)
  Sender: ABBVIE
  Company Number: CH-ABBVIE-5453033

PATIENT
  Sex: Female

DRUGS (15)
  1. CARBIDOPA\LEVODOPA [Suspect]
     Active Substance: CARBIDOPA\LEVODOPA
     Indication: Parkinson^s disease
     Dosage: MD:  5.4 ML, CRD:  3.8 ML/H, CRN: 2.5 ML/H, ED:  2.4 ML,?FREQUENCY TEXT: 24H THERAPY?LAST ADMIN D...
     Route: 050
     Dates: start: 20230413
  2. CARBIDOPA\LEVODOPA [Suspect]
     Active Substance: CARBIDOPA\LEVODOPA
     Dosage: MD:  5.4 ML, CRD:  3.8 ML/H, CRN: 2.5 ML/H, ED:  2.5 ML,?FREQUENCY TEXT: 24H THERAPY
     Route: 050
     Dates: start: 20230608, end: 20231009
  3. CARBIDOPA\LEVODOPA [Suspect]
     Active Substance: CARBIDOPA\LEVODOPA
     Dosage: MD:  5.4 ML, CRD:  4.0 ML/H, CRN: 2.5 ML/H, ED:  2.5 ML,?FREQUENCY TEXT: 24H THERAPY
     Route: 050
     Dates: start: 20231009, end: 20231109
  4. CARBIDOPA\LEVODOPA [Suspect]
     Active Substance: CARBIDOPA\LEVODOPA
     Dosage: MD:  5.4 ML, CRD:  3.7 ML/H, CRN: 2.5 ML/H, ED:  2.4 ML,?FREQUENCY TEXT: 24H THERAPY
     Route: 050
     Dates: start: 20230322, end: 20230413
  5. CARBIDOPA\LEVODOPA [Suspect]
     Active Substance: CARBIDOPA\LEVODOPA
     Dosage: FREQUENCY TEXT: 24H THERAPY
     Route: 050
     Dates: start: 20200817
  6. CARBIDOPA\LEVODOPA [Suspect]
     Active Substance: CARBIDOPA\LEVODOPA
     Dosage: MD:  5.4 ML, CRD:  3.8 ML/H, CRN: 2.5 ML/H, ED:  2.5 ML,?FREQUENCY TEXT: 24H THERAPY
     Route: 050
     Dates: start: 20230415, end: 20230608
  7. CARBIDOPA\LEVODOPA [Suspect]
     Active Substance: CARBIDOPA\LEVODOPA
     Dosage: MD:  5.4 ML, CRD:  3.6 ML/H, CRN: 2.5 ML/H, ED:  2.5 ML?FREQUENCY TEXT: 24H THERAPY
     Route: 050
     Dates: start: 20231110, end: 20240108
  8. CARBIDOPA\LEVODOPA [Suspect]
     Active Substance: CARBIDOPA\LEVODOPA
     Dosage: MD:  5.4 ML, CRD:  3.8 ML/H, CRN: 2.5 ML/H, ED:  2.5 ML?FREQUENCY TEXT: 24H THERAPY
     Route: 050
     Dates: start: 20231109, end: 20231109
  9. CARBIDOPA\LEVODOPA [Suspect]
     Active Substance: CARBIDOPA\LEVODOPA
     Dosage: MD:  5.4 ML, CRD:  3.8 ML/H, CRN: 2.5 ML/H, ED:  2.5 ML?FREQUENCY TEXT: 24H THERAPY
     Route: 050
     Dates: start: 20240108, end: 20240221
  10. CARBIDOPA\LEVODOPA [Suspect]
     Active Substance: CARBIDOPA\LEVODOPA
     Dosage: MD:  5.4 ML, CRD:  3.8 ML/H, CRN: 2.5 ML/H, ED:  2.5 ML, 24H THERAPY?LAST ADMIN DATE:2024
     Route: 050
     Dates: start: 20240221
  11. CARBIDOPA\LEVODOPA [Suspect]
     Active Substance: CARBIDOPA\LEVODOPA
     Dosage: MD:  5.4 ML, CRD:  3.6 ML/H, CRN: 2.5 ML/H, ED:  2.5 ML?FREQUENCY TEXT: 24H THERAPY
     Route: 050
     Dates: start: 20231109, end: 20231110
  12. BENSERAZIDE HYDROCHLORIDE\LEVODOPA [Concomitant]
     Active Substance: BENSERAZIDE HYDROCHLORIDE\LEVODOPA
     Indication: Parkinson^s disease
     Dates: start: 20210727
  13. STALEVO [Concomitant]
     Active Substance: CARBIDOPA\ENTACAPONE\LEVODOPA
     Indication: Product used for unknown indication
  14. BENSERAZIDE HYDROCHLORIDE\LEVODOPA [Concomitant]
     Active Substance: BENSERAZIDE HYDROCHLORIDE\LEVODOPA
     Indication: Parkinson^s disease
     Dosage: FREQUENCY TEXT: SEVERE OFF PHASES AFTERNOON
     Route: 048
     Dates: start: 20210727
  15. NEUPRO [Concomitant]
     Active Substance: ROTIGOTINE
     Indication: Product used for unknown indication

REACTIONS (42)
  - General physical health deterioration [Not Recovered/Not Resolved]
  - Stoma site discharge [Not Recovered/Not Resolved]
  - On and off phenomenon [Recovered/Resolved]
  - Memory impairment [Not Recovered/Not Resolved]
  - Hallucination [Recovered/Resolved]
  - Fatigue [Not Recovered/Not Resolved]
  - Bradykinesia [Unknown]
  - Akinesia [Not Recovered/Not Resolved]
  - Mobility decreased [Not Recovered/Not Resolved]
  - Discomfort [Not Recovered/Not Resolved]
  - Stoma site discomfort [Not Recovered/Not Resolved]
  - Drug ineffective [Unknown]
  - Dysphonia [Not Recovered/Not Resolved]
  - Device issue [Recovered/Resolved]
  - Fall [Not Recovered/Not Resolved]
  - Asthenia [Not Recovered/Not Resolved]
  - Aphasia [Not Recovered/Not Resolved]
  - Patient dissatisfaction with treatment [Not Recovered/Not Resolved]
  - Freezing phenomenon [Not Recovered/Not Resolved]
  - Duodenal ulcer [Not Recovered/Not Resolved]
  - Muscular weakness [Not Recovered/Not Resolved]
  - Gastric ulcer [Recovered/Resolved]
  - Dyskinesia [Recovering/Resolving]
  - Abdominal pain [Recovering/Resolving]
  - Hyperkinesia [Not Recovered/Not Resolved]
  - Hypersomnia [Not Recovered/Not Resolved]
  - Intestinal ulcer [Not Recovered/Not Resolved]
  - On and off phenomenon [Not Recovered/Not Resolved]
  - Therapeutic product effect variable [Recovering/Resolving]
  - Urinary incontinence [Not Recovered/Not Resolved]
  - Therapeutic product effect decreased [Unknown]
  - Off label use [Not Recovered/Not Resolved]
  - Device issue [Not Recovered/Not Resolved]
  - Aphasia [Not Recovered/Not Resolved]
  - Weight decreased [Unknown]
  - Hallucination, visual [Not Recovered/Not Resolved]
  - Hypersomnia [Recovered/Resolved]
  - Immobile [Not Recovered/Not Resolved]
  - Hallucination [Not Recovered/Not Resolved]
  - Gastric ulcer [Not Recovered/Not Resolved]
  - Duodenal ulcer [Not Recovered/Not Resolved]
  - Speech disorder [Not Recovered/Not Resolved]

NARRATIVE: CASE EVENT DATE: 20230101
